FAERS Safety Report 16952619 (Version 1)
Quarter: 2019Q4

REPORT INFORMATION
  Report Type: Spontaneous
  Country: US (occurrence: US)
  Receive Date: 20191023
  Receipt Date: 20191023
  Transmission Date: 20200122
  Serious: No
  Sender: FDA-Public Use
  Company Number: US-BAYER-2019-190852

PATIENT
  Age: 56 Year
  Sex: Male
  Weight: 86 kg

DRUGS (1)
  1. ALEVE [Suspect]
     Active Substance: NAPROXEN SODIUM
     Indication: PAIN
     Dosage: ;TAKE 1 CAPLET EVERY 8 TO 12 HOURS
     Route: 048

REACTIONS (3)
  - Product packaging issue [None]
  - Product lot number issue [None]
  - Expired product administered [Unknown]
